FAERS Safety Report 4620043-2 (Version None)
Quarter: 2005Q1

REPORT INFORMATION
  Report Type: 
  Country: None (occurrence: None)
  Receive Date: 20050322
  Receipt Date: 20050322
  Transmission Date: 20050727
  Serious: Yes (Life-Threatening, Hospitalization, Other)
  Sender: FDA-Public Use
  Company Number: None

PATIENT
  Sex: Male

DRUGS (2)
  1. METHOTREXATE [Suspect]
     Indication: ACUTE LYMPHOCYTIC LEUKAEMIA
     Dosage: 1000MG/M2    INTRAVENOU
     Route: 042
     Dates: start: 20050106, end: 20050121
  2. METHOTREXATE [Suspect]
     Indication: CHROMOSOME ANALYSIS ABNORMAL
     Dosage: 1000MG/M2    INTRAVENOU
     Route: 042
     Dates: start: 20050106, end: 20050121

REACTIONS (8)
  - DRUG CLEARANCE DECREASED [None]
  - DRUG TOXICITY [None]
  - ENCEPHALOPATHY [None]
  - HAEMODIALYSIS [None]
  - HEPATIC FUNCTION ABNORMAL [None]
  - MUCOSAL INFLAMMATION [None]
  - PANCYTOPENIA [None]
  - RENAL IMPAIRMENT [None]
